FAERS Safety Report 8544908-4 (Version None)
Quarter: 2012Q3

REPORT INFORMATION
  Report Type: 
  Country: None (occurrence: None)
  Receive Date: 20120727
  Receipt Date: 20120719
  Transmission Date: 20120928
  Serious: Yes (Other)
  Sender: FDA-Public Use
  Company Number: BR-JNJFOC-20120711356

PATIENT
  Sex: Female
  Weight: 59 kg

DRUGS (4)
  1. REMICADE [Suspect]
     Indication: RHEUMATOID ARTHRITIS
     Route: 042
     Dates: start: 20111219, end: 20111219
  2. REMICADE [Suspect]
     Route: 042
     Dates: start: 20080101
  3. ARAVA [Concomitant]
     Route: 065
  4. CALCIUM [Concomitant]
     Route: 065

REACTIONS (2)
  - ABASIA [None]
  - DRUG INEFFECTIVE [None]
